FAERS Safety Report 13669469 (Version 1)
Quarter: 2017Q2

REPORT INFORMATION
  Report Type: Spontaneous
  Country: US (occurrence: US)
  Receive Date: 20170620
  Receipt Date: 20170620
  Transmission Date: 20170830
  Serious: Yes (Death, Hospitalization)
  Sender: FDA-Public Use
  Company Number: US-LPDUSPRD-20170795

PATIENT
  Age: 86 Year
  Sex: Male

DRUGS (1)
  1. CYCLOSPORINE INJECTION, USP (866-10) [Suspect]
     Active Substance: CYCLOSPORINE
     Dosage: DOSE NOT PROVIDED
     Route: 065

REACTIONS (4)
  - Tuberculosis [Fatal]
  - Pleural effusion [Fatal]
  - Renal failure [Fatal]
  - Respiratory failure [Fatal]
